FAERS Safety Report 5070351-9 (Version None)
Quarter: 2006Q3

REPORT INFORMATION
  Report Type: 
  Country: None (occurrence: None)
  Receive Date: 20060731
  Receipt Date: 20050920
  Transmission Date: 20061208
  Serious: Yes (Other)
  Sender: FDA-Public Use
  Company Number: CHNY2005AU03023

PATIENT
  Age: 50 Year
  Sex: Female

DRUGS (3)
  1. NICOTINE [Suspect]
     Dosage: SEE IMAGE
     Route: 062
     Dates: start: 20041201, end: 20041201
  2. NICOTINE [Suspect]
     Dosage: SEE IMAGE
     Route: 062
     Dates: start: 20041201, end: 20041201
  3. LIPITOR [Concomitant]

REACTIONS (5)
  - AGITATION [None]
  - CONFUSIONAL STATE [None]
  - DISTURBANCE IN ATTENTION [None]
  - IMPAIRED DRIVING ABILITY [None]
  - VERTIGO [None]
